FAERS Safety Report 6563884-7 (Version None)
Quarter: 2010Q1

REPORT INFORMATION
  Report Type: 
  Country: None (occurrence: None)
  Receive Date: 20100131
  Receipt Date: 20091231
  Transmission Date: 20100710
  Serious: No
  Sender: FDA-Public Use
  Company Number: US-ABBOTT-10P-163-0617838-00

PATIENT
  Sex: Male
  Weight: 102.15 kg

DRUGS (3)
  1. HUMIRA [Suspect]
     Indication: PSORIASIS
     Route: 058
     Dates: start: 20090501
  2. HUMIRA [Suspect]
     Route: 058
  3. CLOBEX SPRAY [Concomitant]
     Indication: PSORIASIS

REACTIONS (1)
  - HEPATIC ENZYME INCREASED [None]
